FAERS Safety Report 5041048-6 (Version None)
Quarter: 2006Q2

REPORT INFORMATION
  Report Type: 
  Country: None (occurrence: None)
  Receive Date: 20060630
  Receipt Date: 20060630
  Transmission Date: 20061013
  Serious: No
  Sender: FDA-Public Use
  Company Number: None

PATIENT
  Sex: Female
  Weight: 59.8748 kg

DRUGS (1)
  1. VORICONAZOLE  200 MG FOR INJECTION [Suspect]
     Dosage: 410 MG Q 12 H X 2 DOSES IV
     Route: 042
     Dates: start: 20060403, end: 20060403

REACTIONS (3)
  - ALTERED VISUAL DEPTH PERCEPTION [None]
  - DIPLOPIA [None]
  - HALLUCINATION [None]
